FAERS Safety Report 5759839-2 (Version None)
Quarter: 2008Q2

REPORT INFORMATION
  Report Type: 
  Country: None (occurrence: None)
  Receive Date: 20080605
  Receipt Date: 20080527
  Transmission Date: 20081010
  Serious: Yes (Hospitalization, Other)
  Sender: FDA-Public Use
  Company Number: PHHY2008GB09641

PATIENT
  Age: 28 Year
  Sex: Male

DRUGS (3)
  1. CLOZARIL [Suspect]
     Indication: SCHIZOPHRENIA
     Dosage: 350 MG
     Dates: start: 20060105, end: 20060726
  2. CLOZARIL [Suspect]
     Dosage: 400 MG
     Dates: start: 20060110, end: 20060626
  3. AMOXICILLIN [Concomitant]
     Indication: PROPHYLAXIS

REACTIONS (4)
  - FOOD POISONING [None]
  - NAUSEA [None]
  - NEUTROPHIL COUNT DECREASED [None]
  - WHITE BLOOD CELL COUNT DECREASED [None]
